FAERS Safety Report 4619053-0 (Version None)
Quarter: 2005Q1

REPORT INFORMATION
  Report Type: 
  Country: None (occurrence: None)
  Receive Date: 20050317
  Receipt Date: 20050317
  Transmission Date: 20050727
  Serious: Yes (Hospitalization)
  Sender: FDA-Public Use
  Company Number: None

PATIENT
  Age: 80 Year
  Sex: Male

DRUGS (9)
  1. GATIFLOXACIN [Suspect]
     Indication: URINARY TRACT INFECTION
     Dosage: 400MG   DAILY    ORAL
     Route: 048
     Dates: start: 20050128, end: 20050207
  2. GLYBURIDE [Concomitant]
  3. DIGOXIN [Concomitant]
  4. ALDACTONE [Concomitant]
  5. ZOCOR [Concomitant]
  6. LASIX [Concomitant]
  7. ASPIRIN [Concomitant]
  8. TOPROL-XL [Concomitant]
  9. LISINOPRIL [Concomitant]

REACTIONS (1)
  - HYPERGLYCAEMIA [None]
